FAERS Safety Report 18207838 (Version 2)
Quarter: 2021Q2

REPORT INFORMATION
  Report Type: Other
  Country: JP (occurrence: JP)
  Receive Date: 20200828
  Receipt Date: 20210415
  Transmission Date: 20210717
  Serious: Yes (Other)
  Sender: FDA-Public Use
  Company Number: JP-ROCHE-2666710

PATIENT

DRUGS (2)
  1. BEVACIZUMAB. [Suspect]
     Active Substance: BEVACIZUMAB
     Indication: NON-SMALL CELL LUNG CANCER
     Route: 065
  2. ERLOTINIB [Suspect]
     Active Substance: ERLOTINIB
     Indication: NON-SMALL CELL LUNG CANCER
     Route: 065

REACTIONS (8)
  - Rash [Unknown]
  - Pneumothorax [Unknown]
  - Haemorrhage intracranial [Unknown]
  - Nausea [Unknown]
  - Proteinuria [Unknown]
  - Upper gastrointestinal haemorrhage [Unknown]
  - Gastrointestinal perforation [Unknown]
  - Lower gastrointestinal haemorrhage [Unknown]
